FAERS Safety Report 12077707 (Version 2)
Quarter: 2016Q1

REPORT INFORMATION
  Report Type: Report from Study
  Country: US (occurrence: US)
  Receive Date: 20160215
  Receipt Date: 20160304
  Transmission Date: 20160526
  Serious: Yes (Death)
  Sender: FDA-Public Use
  Company Number: US-HLSUS-2016-US-000038

PATIENT
  Age: 57 Year
  Sex: Male

DRUGS (1)
  1. CLOZAPINE. [Suspect]
     Active Substance: CLOZAPINE
     Indication: SCHIZOPHRENIA
     Dosage: 500 MG QD
     Route: 048

REACTIONS (3)
  - Cardiopulmonary failure [None]
  - Asthma [None]
  - Death [Fatal]

NARRATIVE: CASE EVENT DATE: 20160206
